FAERS Safety Report 6147810-0 (Version None)
Quarter: 2009Q2

REPORT INFORMATION
  Report Type: 
  Country: None (occurrence: None)
  Receive Date: 20090408
  Receipt Date: 20090331
  Transmission Date: 20091009
  Serious: Yes (Other)
  Sender: FDA-Public Use
  Company Number: US-BAYER-200913933NA

PATIENT
  Age: 39 Year
  Sex: Female
  Weight: 84 kg

DRUGS (7)
  1. MIRENA [Suspect]
     Indication: CONTRACEPTION
     Route: 015
     Dates: start: 20040301, end: 20080401
  2. MIRENA [Suspect]
     Route: 015
     Dates: start: 20080401, end: 20090223
  3. RHINACORT [Concomitant]
     Indication: SEASONAL ALLERGY
  4. LEVOTHYROXINE [Concomitant]
     Indication: HYPOTHYROIDISM
  5. MULTIPLE VITAMINS [Concomitant]
     Indication: MEDICAL DIET
  6. DOXYCYCLINE HYCLATE [Concomitant]
     Indication: DRUG USE FOR UNKNOWN INDICATION
     Dosage: TOTAL DAILY DOSE: 200 MG
     Route: 048
     Dates: start: 20090223
  7. ORTHO TRI-CYCLEN LO [Concomitant]
     Indication: CONTRACEPTION
     Route: 048
     Dates: start: 20090224

REACTIONS (5)
  - ABDOMINAL PAIN [None]
  - HYPERTRICHOSIS [None]
  - LYMPHADENITIS [None]
  - PROCEDURAL PAIN [None]
  - SCAR [None]
